FAERS Safety Report 6804147-1 (Version None)
Quarter: 2010Q2

REPORT INFORMATION
  Report Type: 
  Country: None (occurrence: None)
  Receive Date: 20100628
  Receipt Date: 20070316
  Transmission Date: 20101027
  Serious: No
  Sender: FDA-Public Use
  Company Number: US-PFIZER INC-2007001092

PATIENT
  Sex: Male
  Weight: 81.65 kg

DRUGS (3)
  1. CADUET [Suspect]
     Indication: BLOOD PRESSURE
     Dates: start: 20061101
  2. CADUET [Suspect]
     Indication: BLOOD CHOLESTEROL
  3. ACETYLSALICYLIC ACID [Concomitant]

REACTIONS (4)
  - GINGIVAL BLEEDING [None]
  - GINGIVAL HYPERPLASIA [None]
  - INTENTIONAL DRUG MISUSE [None]
  - PERIODONTAL DISEASE [None]
